FAERS Safety Report 4349926-8 (Version None)
Quarter: 2004Q2

REPORT INFORMATION
  Report Type: 
  Country: None (occurrence: None)
  Receive Date: 20040426
  Receipt Date: 20040415
  Transmission Date: 20050107
  Serious: Yes (Other)
  Sender: FDA-Public Use
  Company Number: 2004209860FR

PATIENT
  Age: 60 Year
  Sex: Male

DRUGS (4)
  1. LOGIFLOX (LOMEFLOXACIN HYDROCHLORIDE) TABLET [Suspect]
     Indication: URINARY TRACT INFECTION
     Dosage: 1 DF, DAILY, ORAL
     Route: 048
  2. SPASFON [Concomitant]
  3. TAHOR [Concomitant]
  4. VOGALENE [Concomitant]

REACTIONS (1)
  - BURNS SECOND DEGREE [None]
